FAERS Safety Report 11770608 (Version 1)
Quarter: 2015Q4

REPORT INFORMATION
  Report Type: Spontaneous
  Country: TR (occurrence: TR)
  Receive Date: 20151123
  Receipt Date: 20151123
  Transmission Date: 20160304
  Serious: Yes (Hospitalization)
  Sender: FDA-Public Use
  Company Number: TR-IPCA LABORATORIES LIMITED-IPC201511-000754

PATIENT
  Age: 32 Year
  Sex: Female

DRUGS (1)
  1. METOPROLOL TARTRATE. [Suspect]
     Active Substance: METOPROLOL TARTRATE

REACTIONS (5)
  - Sinus bradycardia [Recovered/Resolved]
  - Urinary tract infection [Unknown]
  - Intentional overdose [Unknown]
  - Pancreatitis [Unknown]
  - Toxicity to various agents [Unknown]
